FAERS Safety Report 4502595-6 (Version None)
Quarter: 2004Q3

REPORT INFORMATION
  Report Type: 
  Country: None (occurrence: None)
  Receive Date: 20040928
  Receipt Date: 20040719
  Transmission Date: 20050211
  Serious: No
  Sender: FDA-Public Use
  Company Number: 04P-163-0267397-00

PATIENT
  Age: 58 Year
  Sex: Female
  Weight: 68.0396 kg

DRUGS (8)
  1. HUMIRA [Suspect]
     Indication: RHEUMATOID ARTHRITIS
     Dosage: 40 MG, 1 IN 2 WK, SUBCUTAENOUS
     Route: 058
     Dates: start: 20030901
  2. TRAMADOL HCL [Concomitant]
  3. OMEPRAZOLE [Concomitant]
  4. FORTEO [Concomitant]
  5. SPIRONOLACTONE [Concomitant]
  6. IMITREX [Concomitant]
  7. CELECOXIB [Concomitant]
  8. ISONIAZID [Concomitant]

REACTIONS (1)
  - INJECTION SITE HAEMORRHAGE [None]
